FAERS Safety Report 5871382-9 (Version None)
Quarter: 2008Q3

REPORT INFORMATION
  Report Type: 
  Country: None (occurrence: None)
  Receive Date: 20080904
  Receipt Date: 20080904
  Transmission Date: 20090109
  Serious: Yes (Other)
  Sender: FDA-Public Use
  Company Number: None

PATIENT
  Sex: Female
  Weight: 55.3388 kg

DRUGS (2)
  1. PRIMIDONE [Suspect]
     Indication: CONVULSION
     Dosage: 250 MG 1 AM. 1 3 P.M. 2 10 P.M.
  2. DILANTIN [Suspect]
     Dosage: 100MG 250MG 2PM 50 MG. 1 1/2 10AM 1 AT 3PM. 1/2 10PM

REACTIONS (4)
  - CONVULSION [None]
  - DRUG INEFFECTIVE [None]
  - ECONOMIC PROBLEM [None]
  - THERAPEUTIC RESPONSE UNEXPECTED WITH DRUG SUBSTITUTION [None]
